FAERS Safety Report 8313050-X (Version None)
Quarter: 2012Q2

REPORT INFORMATION
  Report Type: 
  Country: None (occurrence: None)
  Receive Date: 20120426
  Receipt Date: 20120420
  Transmission Date: 20120825
  Serious: Yes (Other)
  Sender: FDA-Public Use
  Company Number: BR-PFIZER INC-2012098629

PATIENT
  Sex: Female

DRUGS (2)
  1. BUPROPION HYDROCHLORIDE [Suspect]
     Dosage: UNK
     Route: 048
  2. PRISTIQ [Suspect]
     Dosage: UNK
     Route: 048

REACTIONS (1)
  - DRUG DEPENDENCE [None]
